FAERS Safety Report 9513936 (Version 3)
Quarter: 2013Q4

REPORT INFORMATION
  Report Type: Spontaneous
  Country: US (occurrence: US)
  Receive Date: 20130910
  Receipt Date: 20131230
  Transmission Date: 20140711
  Serious: Yes (Hospitalization, Other)
  Sender: FDA-Public Use
  Company Number: US-B.I. PHARMACEUTICALS,INC./RIDGEFIELD-2013-BI-03850BP

PATIENT
  Sex: Male
  Weight: 61.23 kg

DRUGS (4)
  1. COMBIVENT [Suspect]
     Indication: CHRONIC OBSTRUCTIVE PULMONARY DISEASE
     Dosage: STRENGTH: 18 MCG/103 MCG, DAILY DOSE: 144MCG/824 MCG
     Route: 055
     Dates: start: 1998, end: 201311
  2. COMBIVENT RESPIMAT [Concomitant]
     Indication: CHRONIC OBSTRUCTIVE PULMONARY DISEASE
     Dosage: STRENGTH: 20MCG/100MCG, DAILY DOSE: 80MCG/400MCG
     Route: 055
     Dates: start: 20130829
  3. VERAPAMIL SR [Concomitant]
     Indication: HYPERTENSION
     Dosage: 240 MG
     Route: 048
  4. CRESTOR [Concomitant]
     Indication: HYPERTENSION
     Dosage: 10 MG
     Route: 048

REACTIONS (10)
  - Carotid artery occlusion [Recovered/Resolved]
  - Prostate cancer [Not Recovered/Not Resolved]
  - T-cell lymphoma [Not Recovered/Not Resolved]
  - Skin cancer [Not Recovered/Not Resolved]
  - Carotid artery occlusion [Not Recovered/Not Resolved]
  - Nasal septum deviation [Not Recovered/Not Resolved]
  - Dizziness [Recovered/Resolved]
  - Vitreous floaters [Not Recovered/Not Resolved]
  - Dizziness [Recovered/Resolved]
  - Hypothyroidism [Not Recovered/Not Resolved]
